FAERS Safety Report 18638222 (Version 1)
Quarter: 2020Q4

REPORT INFORMATION
  Report Type: Report from Study
  Country: None (occurrence: AU)
  Receive Date: 20201219
  Receipt Date: 20201219
  Transmission Date: 20210114
  Serious: Yes (Hospitalization, Disabling)
  Sender: FDA-Public Use
  Company Number: AU-ABBVIE-20K-008-3628385-00

PATIENT
  Age: 68 Year
  Sex: Male

DRUGS (2)
  1. DUODOPA [Suspect]
     Active Substance: CARBIDOPA\LEVODOPA
  2. DUODOPA [Suspect]
     Active Substance: CARBIDOPA\LEVODOPA
     Indication: PARKINSON^S DISEASE
     Route: 050
     Dates: start: 20170614

REACTIONS (12)
  - Stoma site infection [Unknown]
  - Anal incontinence [Unknown]
  - Sleep disorder [Unknown]
  - Behaviour disorder [Unknown]
  - Stoma site erythema [Not Recovered/Not Resolved]
  - Fall [Unknown]
  - Aggression [Unknown]
  - Stoma site discharge [Not Recovered/Not Resolved]
  - Confusional state [Unknown]
  - Mobility decreased [Unknown]
  - Stoma site extravasation [Not Recovered/Not Resolved]
  - Anxiety [Unknown]

NARRATIVE: CASE EVENT DATE: 2020
